FAERS Safety Report 9889739 (Version 3)
Quarter: 2014Q1

REPORT INFORMATION
  Report Type: Spontaneous
  Country: JP (occurrence: JP)
  Receive Date: 20140211
  Receipt Date: 20140227
  Transmission Date: 20141002
  Serious: Yes (Life-Threatening, Hospitalization, Other)
  Sender: FDA-Public Use
  Company Number: JP-PFIZER INC-2013364071

PATIENT
  Age: 81 Year
  Sex: Female
  Weight: 31 kg

DRUGS (13)
  1. RHEUMATREX [Suspect]
     Indication: RHEUMATOID ARTHRITIS
     Dosage: 4 MG, WEEKLY
     Route: 048
     Dates: start: 20120721, end: 20120921
  2. RHEUMATREX [Suspect]
     Dosage: 6 MG, WEEKLY
     Route: 048
     Dates: start: 20120922, end: 20121019
  3. RHEUMATREX [Suspect]
     Dosage: 8 MG, WEEKLY
     Route: 048
     Dates: start: 20121020, end: 20131024
  4. AZULFIDINE EN [Suspect]
     Dosage: 500 MG, 2X/DAY
     Route: 048
     Dates: start: 20131018, end: 20131024
  5. CELECOX [Concomitant]
     Indication: RHEUMATOID ARTHRITIS
     Dosage: 100 MG, 2X/DAY
     Route: 048
     Dates: start: 20120511, end: 20131024
  6. LOXONIN [Concomitant]
     Indication: RHEUMATOID ARTHRITIS
     Dosage: 100 MG, 1X/DAY
     Route: 062
     Dates: start: 20121116, end: 20131024
  7. BLOPRESS [Concomitant]
     Indication: HYPERTENSION
     Dosage: 4 MG, 1X/DAY
     Route: 048
     Dates: end: 20131024
  8. RABEPRAZOLE NA [Concomitant]
     Indication: GASTRITIS
     Dosage: 10 MG, 1X/DAY
     Route: 048
     Dates: end: 20131024
  9. ATORVASTATIN [Concomitant]
     Indication: HYPERLIPIDAEMIA
     Dosage: 10 MG, 1X/DAY
     Route: 048
     Dates: end: 20131024
  10. RULICIN [Concomitant]
     Indication: BRONCHIECTASIS
     Dosage: 150 MG, 1X/DAY
     Route: 048
     Dates: end: 20131024
  11. CARBOCISTEINE [Concomitant]
     Indication: CHRONIC SINUSITIS
     Dosage: 500 MG, 2X/DAY
     Route: 048
     Dates: end: 20131024
  12. VOGLIBOSE [Concomitant]
     Indication: DIABETES MELLITUS
     Dosage: 0.3 MG, 3X/DAY
     Route: 048
     Dates: end: 20131024
  13. KIPRES [Concomitant]
     Indication: ASTHMA
     Dosage: 10 MG, 1X/DAY
     Route: 048
     Dates: end: 20131024

REACTIONS (2)
  - Bone marrow failure [Recovered/Resolved]
  - Glomerular filtration rate decreased [Recovered/Resolved]
